FAERS Safety Report 4377931-4 (Version None)
Quarter: 2004Q2

REPORT INFORMATION
  Report Type: 
  Country: None (occurrence: None)
  Receive Date: 20040616
  Receipt Date: 20040217
  Transmission Date: 20050107
  Serious: Yes (Other)
  Sender: FDA-Public Use
  Company Number: PHNU2004DE00923

PATIENT
  Age: 37 Year
  Sex: Male
  Weight: 103 kg

DRUGS (1)
  1. SANDIMMUNE [Suspect]
     Indication: DERMATITIS ATOPIC
     Dosage: 100MG/DAY
     Route: 048
     Dates: start: 20030701, end: 20040217

REACTIONS (5)
  - BLOOD URIC ACID INCREASED [None]
  - BRONCHITIS [None]
  - GOUT [None]
  - INCREASED BRONCHIAL SECRETION [None]
  - LARYNGITIS [None]
